FAERS Safety Report 7319256-0 (Version None)
Quarter: 2011Q1

REPORT INFORMATION
  Report Type: 
  Country: None (occurrence: None)
  Receive Date: 20110228
  Receipt Date: 20100813
  Transmission Date: 20110831
  Serious: No
  Sender: FDA-Public Use
  Company Number: A0770008A

PATIENT
  Sex: Female

DRUGS (1)
  1. LAMICTAL [Suspect]
     Indication: BIPOLAR DISORDER
     Route: 048
     Dates: start: 20051219

REACTIONS (6)
  - NERVOUSNESS [None]
  - DRUG INEFFECTIVE [None]
  - VOMITING [None]
  - TREMOR [None]
  - OVERDOSE [None]
  - DECREASED APPETITE [None]
